FAERS Safety Report 8810840 (Version 1)
Quarter: 2012Q4

REPORT INFORMATION
  Report Type: 
  Country: US (occurrence: US)
  Receive Date: 20120927
  Receipt Date: 20120927
  Transmission Date: 20130627
  Serious: No
  Sender: FDA-Public Use
  Company Number: US-MYLANLABS-2012S1006176

PATIENT
  Age: 62 Year
  Sex: Male

DRUGS (1)
  1. ALENDRONATE SODIUM [Suspect]
     Indication: OSTEOPOROSIS
     Dates: start: 201202

REACTIONS (2)
  - Atrial fibrillation [Not Recovered/Not Resolved]
  - Blood pressure increased [Not Recovered/Not Resolved]
